FAERS Safety Report 9742573 (Version 1)
Quarter: 2013Q4

REPORT INFORMATION
  Report Type: Spontaneous
  Country: SE (occurrence: SE)
  Receive Date: 20131210
  Receipt Date: 20131210
  Transmission Date: 20140711
  Serious: Yes (Other)
  Sender: FDA-Public Use
  Company Number: PHHY2013SE141021

PATIENT
  Age: 49 Year
  Sex: Female

DRUGS (3)
  1. SERTRALIN HEXAL [Suspect]
     Indication: DEPRESSION
     Dosage: 100 MG, UNK
     Route: 048
  2. SERTRALIN HEXAL [Suspect]
     Dosage: 50 MG, UNK
     Route: 048
  3. SERTRALIN HEXAL [Suspect]
     Dosage: 25 MG, UNK
     Route: 048

REACTIONS (1)
  - Deafness [Unknown]
